FAERS Safety Report 22942807 (Version 4)
Quarter: 2023Q4

REPORT INFORMATION
  Report Type: Report from Study
  Country: US (occurrence: US)
  Receive Date: 20230914
  Receipt Date: 20231215
  Transmission Date: 20240109
  Serious: Yes (Other)
  Sender: FDA-Public Use
  Company Number: US-002147023-NVSC2023US196903

PATIENT
  Age: 56 Year
  Sex: Male

DRUGS (3)
  1. ENTRESTO [Suspect]
     Active Substance: SACUBITRIL\VALSARTAN
     Indication: Product used for unknown indication
     Dosage: 1 DOSAGE FORM, BID (TOOK FOR 1-2 YEARS)
     Route: 065
     Dates: start: 201512
  2. ENTRESTO [Suspect]
     Active Substance: SACUBITRIL\VALSARTAN
     Dosage: UNK
     Route: 065
     Dates: start: 202109
  3. ENTRESTO [Suspect]
     Active Substance: SACUBITRIL\VALSARTAN
     Dosage: 97 MG, BID (97/103)
     Route: 065

REACTIONS (10)
  - Intracardiac thrombus [Unknown]
  - COVID-19 [Unknown]
  - Dyspnoea [Unknown]
  - Rhinorrhoea [Unknown]
  - Fatigue [Unknown]
  - Anaesthetic complication [Unknown]
  - Oropharyngeal pain [Unknown]
  - Throat clearing [Unknown]
  - Paranasal sinus hypersecretion [Unknown]
  - Feeling abnormal [Unknown]

NARRATIVE: CASE EVENT DATE: 20210801
